FAERS Safety Report 19701217 (Version 2)
Quarter: 2022Q1

REPORT INFORMATION
  Report Type: Spontaneous
  Country: GB (occurrence: GB)
  Receive Date: 20210814
  Receipt Date: 20220331
  Transmission Date: 20220423
  Serious: Yes (Hospitalization)
  Sender: FDA-Public Use
  Company Number: None

PATIENT
  Age: 66 Year
  Sex: Female
  Weight: 111.57 kg

DRUGS (1)
  1. AMOXICILLIN\CLAVULANATE POTASSIUM [Suspect]
     Active Substance: AMOXICILLIN\CLAVULANATE POTASSIUM
     Indication: Cholecystitis
     Dosage: UNK
     Route: 051
     Dates: start: 20210711, end: 20210724

REACTIONS (6)
  - Tremor [Recovering/Resolving]
  - Dyspnoea [Recovering/Resolving]
  - Feeling cold [Unknown]
  - Chest pain [Unknown]
  - Feeling abnormal [Unknown]
  - Medication error [Unknown]

NARRATIVE: CASE EVENT DATE: 20210711
